FAERS Safety Report 13166091 (Version 1)
Quarter: 2017Q1

REPORT INFORMATION
  Report Type: Spontaneous
  Country: US (occurrence: US)
  Receive Date: 20170127
  Receipt Date: 20170127
  Transmission Date: 20170428
  Serious: No
  Sender: FDA-Public Use
  Company Number: None

PATIENT
  Age: 62 Year
  Sex: Male
  Weight: 145.61 kg

DRUGS (1)
  1. TRANDOLAPRIL-VERAPAMIL [Suspect]
     Active Substance: TRANDOLAPRIL\VERAPAMIL
     Indication: HYPERTENSION
     Dates: start: 20160518

REACTIONS (2)
  - Headache [None]
  - Cough [None]
